APPROVED DRUG PRODUCT: AMARYL
Active Ingredient: GLIMEPIRIDE
Strength: 4MG **Federal Register determination that product was not discontinued or withdrawn for safety or effectiveness reasons**
Dosage Form/Route: TABLET;ORAL
Application: N020496 | Product #003
Applicant: SANOFI AVENTIS US LLC
Approved: Nov 30, 1995 | RLD: Yes | RS: No | Type: DISCN